FAERS Safety Report 14727889 (Version 2)
Quarter: 2018Q2

REPORT INFORMATION
  Report Type: Spontaneous
  Country: JP (occurrence: JP)
  Receive Date: 20180406
  Receipt Date: 20180427
  Transmission Date: 20180711
  Serious: Yes (Other)
  Sender: FDA-Public Use
  Company Number: JP-BAYER-2018-020960

PATIENT
  Age: 81 Year
  Sex: Male
  Weight: 54 kg

DRUGS (4)
  1. NIFEDIPINE. [Concomitant]
     Active Substance: NIFEDIPINE
     Indication: HYPERTENSION
     Dosage: DAILY DOSE 20 MG
  2. RABEPRAZOLE [Concomitant]
     Active Substance: RABEPRAZOLE
     Indication: CHRONIC GASTRITIS
     Dosage: DAILY DOSE 10 MG
     Route: 048
  3. IRSOGLADINE MALEATE [Concomitant]
     Active Substance: IRSOGLADINE MALEATE
     Indication: CHRONIC GASTRITIS
     Dosage: DAILY DOSE 4 MG
     Route: 048
  4. NEXAVAR [Suspect]
     Active Substance: SORAFENIB
     Indication: HEPATOCELLULAR CARCINOMA
     Dosage: 200 MG, BID
     Route: 048
     Dates: start: 20170602, end: 20180129

REACTIONS (6)
  - Pyrexia [None]
  - Internal haemorrhage [Recovered/Resolved]
  - Abdominal pain upper [None]
  - Purpura [Recovered/Resolved]
  - Eczema [Recovered/Resolved]
  - Keratoacanthoma [Recovered/Resolved]

NARRATIVE: CASE EVENT DATE: 2017
